FAERS Safety Report 7893539-8 (Version None)
Quarter: 2011Q4

REPORT INFORMATION
  Report Type: 
  Country: None (occurrence: None)
  Receive Date: 20111104
  Receipt Date: 20111021
  Transmission Date: 20120403
  Serious: Yes (Other)
  Sender: FDA-Public Use
  Company Number: JP-MERCK-1110USA03602

PATIENT
  Age: 32 Year
  Sex: Male

DRUGS (29)
  1. POLARAMINE TABLETS [Concomitant]
     Route: 048
     Dates: start: 20101027, end: 20101030
  2. LOXONIN [Concomitant]
     Route: 048
     Dates: start: 20101027, end: 20101030
  3. RESPLEN [Concomitant]
     Indication: UPPER RESPIRATORY TRACT INFLAMMATION
     Route: 048
     Dates: start: 20090911, end: 20090913
  4. RESPLEN [Concomitant]
     Route: 048
     Dates: start: 20101027, end: 20101030
  5. BERIZYM (LYSOZYME CHLORIDE) [Concomitant]
     Route: 048
     Dates: start: 20100720
  6. MUCOSTA [Concomitant]
     Route: 048
     Dates: start: 20100720
  7. DEQUALINIUM CHLORIDE [Concomitant]
     Route: 048
     Dates: start: 20101027
  8. NOROXIN [Suspect]
     Indication: BRONCHITIS
     Route: 048
     Dates: start: 20090911, end: 20090913
  9. NOROXIN [Suspect]
     Route: 048
     Dates: start: 20101027, end: 20101030
  10. LYSOZYME CHLORIDE [Concomitant]
     Indication: BRONCHITIS
     Route: 048
     Dates: start: 20090911, end: 20090913
  11. RESPLEN [Concomitant]
     Indication: BRONCHITIS
     Route: 048
     Dates: start: 20090911, end: 20090913
  12. HOKUNALIN [Concomitant]
     Route: 061
     Dates: start: 20101027
  13. PRIMPERAN TAB [Concomitant]
     Route: 048
     Dates: start: 20100720
  14. POLARAMINE TABLETS [Concomitant]
     Route: 048
     Dates: start: 20101027, end: 20101030
  15. LOXONIN [Concomitant]
     Indication: BRONCHITIS
     Route: 048
     Dates: start: 20090911, end: 20090913
  16. LYSOZYME CHLORIDE [Concomitant]
     Route: 048
     Dates: start: 20101027, end: 20101030
  17. LYSOZYME CHLORIDE [Concomitant]
     Route: 048
     Dates: start: 20101027, end: 20101030
  18. LOXONIN [Concomitant]
     Route: 048
     Dates: start: 20101027, end: 20101030
  19. ZANTAC [Concomitant]
     Indication: GASTRITIS
     Route: 048
     Dates: start: 20100720
  20. AZUNOL (SODIUM GUALENATE) [Concomitant]
     Route: 048
     Dates: start: 20101027
  21. NOROXIN [Suspect]
     Route: 048
     Dates: start: 20101027, end: 20101030
  22. LYSOZYME CHLORIDE [Concomitant]
     Indication: UPPER RESPIRATORY TRACT INFLAMMATION
     Route: 048
     Dates: start: 20090911, end: 20090913
  23. POLARAMINE TABLETS [Concomitant]
     Indication: UPPER RESPIRATORY TRACT INFLAMMATION
     Route: 048
     Dates: start: 20090911, end: 20090913
  24. POLARAMINE TABLETS [Concomitant]
     Indication: BRONCHITIS
     Route: 048
     Dates: start: 20090911, end: 20090913
  25. RESPLEN [Concomitant]
     Route: 048
     Dates: start: 20101027, end: 20101030
  26. NOROXIN [Suspect]
     Indication: UPPER RESPIRATORY TRACT INFLAMMATION
     Route: 048
     Dates: start: 20090911, end: 20090913
  27. LOXONIN [Concomitant]
     Indication: UPPER RESPIRATORY TRACT INFLAMMATION
     Route: 048
     Dates: start: 20090911, end: 20090913
  28. GANATON [Concomitant]
     Route: 048
     Dates: start: 20100720
  29. MARZULENE-S [Concomitant]
     Route: 048
     Dates: start: 20100720

REACTIONS (1)
  - DRUG ERUPTION [None]
